FAERS Safety Report 9462305 (Version 2)
Quarter: 2013Q3

REPORT INFORMATION
  Report Type: Spontaneous
  Country: US (occurrence: US)
  Receive Date: 20130816
  Receipt Date: 20130906
  Transmission Date: 20140515
  Serious: No
  Sender: FDA-Public Use
  Company Number: US-VERTEX PHARMACEUTICALS INC-2013-008774

PATIENT
  Sex: Male
  Weight: 99.77 kg

DRUGS (4)
  1. INCIVEK [Suspect]
     Indication: HEPATITIS C
     Dosage: 750 MG, TID
     Route: 048
     Dates: start: 20130809
  2. PEGASYS [Suspect]
     Indication: HEPATITIS C
     Dosage: 180 ?G / 0.5 ML, QW
     Dates: end: 20130809
  3. COPEGUS [Suspect]
     Indication: HEPATITIS C
     Dosage: 600 MG, BID
     Route: 048
  4. VALSARTAN W/HIDROCLOROTIAZIDA [Concomitant]
     Dosage: 320MG - 25MG
     Route: 048

REACTIONS (1)
  - Erectile dysfunction [Unknown]
